FAERS Safety Report 4425149-9 (Version None)
Quarter: 2004Q3

REPORT INFORMATION
  Report Type: 
  Country: None (occurrence: None)
  Receive Date: 20040813
  Receipt Date: 20040810
  Transmission Date: 20050211
  Serious: Yes (Death)
  Sender: FDA-Public Use
  Company Number: US-JNJFOC-20040703599

PATIENT
  Sex: Female
  Weight: 57.61 kg

DRUGS (1)
  1. RISPERDAL [Suspect]
     Route: 049
     Dates: end: 20040701

REACTIONS (4)
  - CEREBRAL ATROPHY [None]
  - CEREBROVASCULAR ACCIDENT [None]
  - INFARCTION [None]
  - METABOLIC ENCEPHALOPATHY [None]
